FAERS Safety Report 25003860 (Version 3)
Quarter: 2025Q1

REPORT INFORMATION
  Report Type: Spontaneous
  Country: US (occurrence: US)
  Receive Date: 20250224
  Receipt Date: 20250318
  Transmission Date: 20250408
  Serious: No
  Sender: PFIZER
  Company Number: US-PFIZER INC-202500036082

PATIENT
  Age: 13 Year
  Sex: Female
  Weight: 58.06 kg

DRUGS (1)
  1. GENOTROPIN [Suspect]
     Active Substance: SOMATROPIN
     Indication: Blood growth hormone
     Dosage: 3.2 MG, DAILY (ONCE A NIGHT)
     Dates: start: 2025

REACTIONS (5)
  - Drug dose omission by device [Unknown]
  - Poor quality device used [Unknown]
  - Device leakage [Unknown]
  - Device chemical property issue [Unknown]
  - Device material issue [Unknown]

NARRATIVE: CASE EVENT DATE: 20250101
